FAERS Safety Report 7877051-8 (Version None)
Quarter: 2011Q4

REPORT INFORMATION
  Report Type: 
  Country: None (occurrence: None)
  Receive Date: 20111031
  Receipt Date: 20110912
  Transmission Date: 20120403
  Serious: No
  Sender: FDA-Public Use
  Company Number: US-ABBOTT-11P-163-0854562-00

PATIENT
  Age: 92 Year
  Sex: Male
  Weight: 56.75 kg

DRUGS (2)
  1. OTHER UNKNOWN MEDICATIONS [Concomitant]
     Indication: PRODUCT USED FOR UNKNOWN INDICATION
  2. CREON 12 [Suspect]
     Indication: PANCREATIC INSUFFICIENCY
     Dosage: TWO CAPSULES WITH EACH MEAL
     Dates: start: 20101220

REACTIONS (1)
  - DRUG DISPENSING ERROR [None]
